FAERS Safety Report 6115432-3 (Version None)
Quarter: 2009Q1

REPORT INFORMATION
  Report Type: 
  Country: None (occurrence: None)
  Receive Date: 20090313
  Receipt Date: 20090310
  Transmission Date: 20090719
  Serious: Yes (Life-Threatening, Hospitalization)
  Sender: FDA-Public Use
  Company Number: DE-AVENTIS-200910677DE

PATIENT
  Age: 67 Year
  Sex: Female

DRUGS (14)
  1. FUROSEMIDE [Suspect]
     Dosage: DOSE: 20MG, 2 IN DAY
     Route: 048
  2. ASPIRIN [Suspect]
     Route: 048
     Dates: start: 20070101
  3. FALITHROM [Suspect]
     Indication: ATRIAL FIBRILLATION
     Dosage: DOSE: NOT REPORTED
     Route: 048
  4. PREDNISOLON ^JENAPHARM^ [Suspect]
     Dosage: DOSE: 5MG, 2 IN DAY
     Route: 048
     Dates: start: 20081201
  5. SIMVASTATIN [Suspect]
     Route: 048
     Dates: start: 20070101
  6. XIPAMIDE [Suspect]
     Route: 048
  7. BISOPROLOL [Concomitant]
     Route: 048
     Dates: start: 20070101
  8. CARMEN [Concomitant]
     Route: 048
  9. FLECAINIDE ACETATE [Concomitant]
     Indication: ATRIAL FIBRILLATION
     Dosage: DOSE: 100MG, 2 IN DAY
     Route: 048
  10. INSULIN ACTRAPID HUMAN [Concomitant]
     Indication: TYPE 2 DIABETES MELLITUS
     Dosage: DOSE: 18-12-8-14
     Route: 058
  11. MTX                                /00113801/ [Concomitant]
     Route: 048
  12. PENTALONG [Concomitant]
     Dosage: DOSE: 80MG, 3 IN DAY
     Route: 048
     Dates: start: 20070101
  13. RAMIPRIL [Concomitant]
     Route: 048
  14. TRAMADOL HCL [Concomitant]
     Dosage: DOSE: 100MG, 2 IN DAY
     Route: 048

REACTIONS (2)
  - GASTROINTESTINAL HAEMORRHAGE [None]
  - HYPERGLYCAEMIA [None]
